FAERS Safety Report 18241276 (Version 1)
Quarter: 2020Q3

REPORT INFORMATION
  Report Type: Spontaneous
  Country: US (occurrence: US)
  Receive Date: 20200906
  Receipt Date: 20200906
  Transmission Date: 20201103
  Serious: No
  Sender: FDA-Public Use
  Company Number: None

PATIENT
  Age: 51 Year
  Sex: Male
  Weight: 121.5 kg

DRUGS (2)
  1. OXYCODONE HYDROCHLORIDE. [Suspect]
     Active Substance: OXYCODONE HYDROCHLORIDE
     Indication: SURGICAL FAILURE
     Route: 048
     Dates: start: 20200903, end: 20200906
  2. BP MEDS [Concomitant]

REACTIONS (6)
  - Abdominal pain upper [None]
  - Nausea [None]
  - Diarrhoea [None]
  - Drug ineffective [None]
  - Headache [None]
  - Vomiting [None]

NARRATIVE: CASE EVENT DATE: 20200903
